FAERS Safety Report 10551474 (Version 4)
Quarter: 2018Q2

REPORT INFORMATION
  Report Type: Spontaneous
  Country: SE (occurrence: SE)
  Receive Date: 20141029
  Receipt Date: 20180613
  Transmission Date: 20180711
  Serious: Yes (Death, Hospitalization, Other)
  Sender: FDA-Public Use
  Company Number: SE-JNJFOC-20141015355

PATIENT
  Age: 22 Month
  Sex: Male

DRUGS (5)
  1. IBUPROFEN. [Suspect]
     Active Substance: IBUPROFEN
     Indication: RESPIRATORY SYMPTOM
     Route: 065
  2. ERYTHROMYCIN. [Suspect]
     Active Substance: ERYTHROMYCIN
     Indication: PYREXIA
     Route: 065
  3. IBUPROFEN. [Suspect]
     Active Substance: IBUPROFEN
     Indication: PYREXIA
     Dosage: NORMAL DOSE
     Route: 065
  4. IBUPROFEN. [Suspect]
     Active Substance: IBUPROFEN
     Indication: PYREXIA
     Route: 065
  5. ERYTHROMYCIN. [Suspect]
     Active Substance: ERYTHROMYCIN
     Indication: RESPIRATORY DISORDER
     Route: 065

REACTIONS (8)
  - Death [Fatal]
  - Vomiting [Unknown]
  - Loss of consciousness [Not Recovered/Not Resolved]
  - Seizure [Unknown]
  - Jaundice [Unknown]
  - Diarrhoea [Unknown]
  - Hepatic failure [Fatal]
  - Altered state of consciousness [Unknown]
